FAERS Safety Report 9361970 (Version 2)
Quarter: 2013Q2

REPORT INFORMATION
  Report Type: Spontaneous
  Country: US (occurrence: US)
  Receive Date: 20130621
  Receipt Date: 20130626
  Transmission Date: 20140414
  Serious: No
  Sender: FDA-Public Use
  Company Number: US-009507513-1306USA005480

PATIENT
  Age: 58 Year
  Sex: Female

DRUGS (15)
  1. SINGULAIR [Suspect]
     Indication: CHRONIC OBSTRUCTIVE PULMONARY DISEASE
     Dosage: 10 MG, UNK
     Route: 048
     Dates: start: 20130521
  2. ZOCOR [Suspect]
     Dosage: UNK
  3. VYTORIN [Suspect]
  4. MONTELUKAST SODIUM [Suspect]
     Dosage: UNK
     Dates: start: 201305
  5. [THERAPY UNSPECIFIED] [Suspect]
  6. EMEPRONIUM BROMIDE [Suspect]
  7. PROVENTIL [Suspect]
  8. PLAVIX [Suspect]
  9. NOVOCAIN [Suspect]
  10. LEVEMIR [Concomitant]
  11. METFORMIN [Concomitant]
  12. PEPCID [Concomitant]
  13. CHLORDIAZEPOXIDE [Concomitant]
  14. TRILIPIX [Concomitant]
  15. COMBIVENT [Concomitant]

REACTIONS (12)
  - Blood glucose increased [Unknown]
  - Dysphonia [Unknown]
  - Wheezing [Unknown]
  - Blood pressure decreased [Unknown]
  - Abdominal discomfort [Unknown]
  - Blood triglycerides increased [Unknown]
  - Headache [Unknown]
  - Paraesthesia [Unknown]
  - Drug ineffective [Unknown]
  - Arthralgia [Unknown]
  - Dizziness [Unknown]
  - Expired drug administered [Unknown]
